FAERS Safety Report 16704493 (Version 10)
Quarter: 2019Q4

REPORT INFORMATION
  Report Type: Spontaneous
  Country: US (occurrence: US)
  Receive Date: 20190814
  Receipt Date: 20191203
  Transmission Date: 20200122
  Serious: Yes (Hospitalization)
  Sender: FDA-Public Use
  Company Number: US-PFIZER INC-2019256502

PATIENT
  Age: 75 Year
  Sex: Male
  Weight: 82 kg

DRUGS (4)
  1. VIAGRA [Suspect]
     Active Substance: SILDENAFIL CITRATE
     Indication: CARDIAC DISORDER
  2. VIAGRA [Suspect]
     Active Substance: SILDENAFIL CITRATE
     Indication: HEART RATE IRREGULAR
     Dosage: 0.5 DF, 2X/DAY (HALF A PILL, TWICE A DAY)
     Route: 048
     Dates: start: 2007
  3. VIAGRA [Suspect]
     Active Substance: SILDENAFIL CITRATE
     Indication: RENAL IMPAIRMENT
     Dosage: 50 MG, DAILY
     Dates: start: 2007
  4. VIAGRA [Suspect]
     Active Substance: SILDENAFIL CITRATE
     Indication: ERECTILE DYSFUNCTION

REACTIONS (4)
  - Heart rate increased [Recovered/Resolved]
  - Hypoacusis [Unknown]
  - Drug effective for unapproved indication [Unknown]
  - Off label use [Unknown]

NARRATIVE: CASE EVENT DATE: 201510
